FAERS Safety Report 7395032 (Version 2)
Quarter: 2014Q3

REPORT INFORMATION
  Report Type: Spontaneous
  Country: US (occurrence: None)
  Receive Date: 20100513
  Receipt Date: 20140922
  Transmission Date: 20150326
  Serious: Yes (Other)
  Sender: FDA-Public Use
  Company Number: 2010S1002638

PATIENT
  Age: 69 Year
  Sex: Female
  Weight: 114.76 kg

DRUGS (10)
  1. AMIODARONE [Concomitant]
     Active Substance: AMIODARONE
  2. PHOSPHO-SODA [Suspect]
     Active Substance: SODIUM PHOSPHATE, DIBASIC\SODIUM PHOSPHATE, MONOBASIC
     Indication: COLONOSCOPY
     Route: 048
     Dates: start: 20060423, end: 20060423
  3. ASPIRIN (ACETYLSALICYLIC ACID) [Concomitant]
     Active Substance: ASPIRIN
  4. LORAZEPAM. [Concomitant]
     Active Substance: LORAZEPAM
  5. REQUIP [Concomitant]
     Active Substance: ROPINIROLE HYDROCHLORIDE
  6. DIOVAN [Concomitant]
     Active Substance: VALSARTAN
  7. DITROPAN (OXYBUTYNIN HYDROCHLORIDE) [Concomitant]
  8. TRAZODONE [Concomitant]
     Active Substance: TRAZODONE HYDROCHLORIDE
  9. PLAVIX (CLOPIDOGREL BISULFATE) [Concomitant]
  10. CELEXA [Concomitant]
     Active Substance: CITALOPRAM HYDROBROMIDE

REACTIONS (8)
  - Hypertensive nephropathy [None]
  - Renal disorder [None]
  - Nephrosclerosis [None]
  - Renal osteodystrophy [None]
  - Nephrogenic anaemia [None]
  - Non-cardiac chest pain [None]
  - Renal failure chronic [None]
  - Myocardial infarction [None]

NARRATIVE: CASE EVENT DATE: 20071219
